FAERS Safety Report 12488950 (Version 1)
Quarter: 2016Q2

REPORT INFORMATION
  Report Type: Spontaneous
  Country: US (occurrence: US)
  Receive Date: 20160622
  Receipt Date: 20160622
  Transmission Date: 20160815
  Serious: Yes (Other)
  Sender: FDA-Public Use
  Company Number: US-ASTELLAS-2016US023563

PATIENT
  Sex: Female

DRUGS (1)
  1. LEXISCAN [Suspect]
     Active Substance: REGADENOSON
     Indication: CARDIAC STRESS TEST
     Dosage: UNK UNK, UNKNOWN FREQ.
     Route: 065
     Dates: start: 20160615, end: 20160615

REACTIONS (7)
  - Hemiparesis [Unknown]
  - Facial paralysis [Unknown]
  - Seizure [Unknown]
  - Dysstasia [Unknown]
  - Cerebrovascular accident [Unknown]
  - Gait disturbance [Unknown]
  - Dysarthria [Unknown]

NARRATIVE: CASE EVENT DATE: 20160615
